FAERS Safety Report 12334992 (Version 1)
Quarter: 2016Q2

REPORT INFORMATION
  Report Type: Spontaneous
  Country: JP (occurrence: JP)
  Receive Date: 20160504
  Receipt Date: 20160504
  Transmission Date: 20160815
  Serious: Yes (Hospitalization, Disabling)
  Sender: FDA-Public Use
  Company Number: JP-009507513-1507JPN000259

PATIENT
  Age: 78 Year
  Sex: Female

DRUGS (2)
  1. FOSAMAC TABLETS 35MG [Suspect]
     Active Substance: ALENDRONATE SODIUM
     Dosage: UNK MG, UNK
     Route: 048
  2. HORMONES (UNSPECIFIED) [Concomitant]
     Active Substance: UNSPECIFIED INGREDIENT
     Dosage: DAILY DOSAGE UNKNOWN
     Route: 048

REACTIONS (11)
  - Abdominal discomfort [Unknown]
  - Diarrhoea [Unknown]
  - Fracture pain [Unknown]
  - Urinary incontinence [Unknown]
  - Decreased appetite [Unknown]
  - Constipation [Unknown]
  - Dizziness [Unknown]
  - Compression fracture [Unknown]
  - Adverse event [Unknown]
  - Wrong technique in product usage process [Unknown]
  - Weight decreased [Unknown]

NARRATIVE: CASE EVENT DATE: 2013
